FAERS Safety Report 7946657-X (Version None)
Quarter: 2011Q4

REPORT INFORMATION
  Report Type: 
  Country: None (occurrence: None)
  Receive Date: 20111129
  Receipt Date: 20111121
  Transmission Date: 20120403
  Serious: Yes (Death, Other)
  Sender: FDA-Public Use
  Company Number: JP-CEPHALON-2011002834

PATIENT
  Sex: Male
  Weight: 44 kg

DRUGS (9)
  1. PAROXETINE HCL [Concomitant]
     Dates: end: 20110518
  2. ITRACONAZOLE [Concomitant]
     Dates: start: 20110317, end: 20110518
  3. SULFAMETHOXAZOLE AND TRIMETHOPRIM [Concomitant]
     Dates: end: 20110518
  4. VALACYCLOVIR HYDROCHLORIDE [Concomitant]
  5. BENDAMUSTINE HCL [Suspect]
     Indication: B-CELL LYMPHOMA
     Route: 042
     Dates: start: 20110223, end: 20110422
  6. ALPRAZOLAM [Concomitant]
     Dates: end: 20110518
  7. BROTIZOLAM [Concomitant]
     Dates: end: 20110518
  8. SULPRIDE [Concomitant]
     Dates: end: 20110518
  9. HYDROXYUREA [Concomitant]
     Dates: start: 20110317, end: 20110518

REACTIONS (9)
  - MYELODYSPLASTIC SYNDROME [None]
  - LYMPHOCYTE COUNT DECREASED [None]
  - NEUTROPHIL COUNT DECREASED [None]
  - BLOOD CREATININE INCREASED [None]
  - ACUTE MYELOID LEUKAEMIA [None]
  - BLOOD UREA INCREASED [None]
  - ANAEMIA [None]
  - BLOOD URIC ACID INCREASED [None]
  - WHITE BLOOD CELL COUNT DECREASED [None]
